FAERS Safety Report 8559608 (Version 2)
Quarter: 2012Q4

REPORT INFORMATION
  Report Type: 
  Country: US (occurrence: US)
  Receive Date: 20120514
  Receipt Date: 20121127
  Transmission Date: 20130627
  Serious: Yes (Hospitalization)
  Sender: FDA-Public Use
  Company Number: US-BAYER-2012-044377

PATIENT
  Age: 31 Year
  Sex: Female
  Weight: 58.46 kg

DRUGS (1)
  1. MIRENA [Suspect]
     Indication: CONTRACEPTION
     Dosage: 20 mcg/24hr, CONT
     Route: 015
     Dates: start: 2010, end: 20120426

REACTIONS (3)
  - Device dislocation [Recovered/Resolved]
  - Device breakage [Recovered/Resolved]
  - Abdominal pain lower [Recovered/Resolved]
